FAERS Safety Report 10408113 (Version 3)
Quarter: 2014Q3

REPORT INFORMATION
  Report Type: Report from Study
  Country: BE (occurrence: BE)
  Receive Date: 20140825
  Receipt Date: 20140918
  Transmission Date: 20150326
  Serious: Yes (Hospitalization)
  Sender: FDA-Public Use
  Company Number: BE-BRISTOL-MYERS SQUIBB COMPANY-21329719

PATIENT
  Age: 52 Year
  Sex: Male
  Weight: 70 kg

DRUGS (14)
  1. NIVOLUMAB [Suspect]
     Active Substance: NIVOLUMAB
     Indication: COLON CANCER
     Route: 042
     Dates: start: 20140717
  2. TAZOCIN [Concomitant]
     Active Substance: PIPERACILLIN SODIUM\TAZOBACTAM SODIUM
  3. OMEPRAZOLE. [Concomitant]
     Active Substance: OMEPRAZOLE
  4. IPILIMUMAB [Suspect]
     Active Substance: IPILIMUMAB
     Indication: COLON CANCER
     Route: 042
     Dates: start: 20140717
  5. PARACETAMOL [Concomitant]
     Active Substance: ACETAMINOPHEN
  6. GLUCOSE [Concomitant]
     Active Substance: DEXTROSE
  7. FERRIC CARBOXYMALTOSE [Concomitant]
     Active Substance: FERRIC CARBOXYMALTOSE
  8. TAVANIC [Concomitant]
     Active Substance: LEVOFLOXACIN
  9. DAFALGAN [Concomitant]
     Active Substance: ACETAMINOPHEN
  10. SODIUM CHLORIDE. [Concomitant]
     Active Substance: SODIUM CHLORIDE
  11. AMOXICLAV [Concomitant]
     Active Substance: AMOXICILLIN\CLAVULANIC ACID
  12. ALDACTONE [Concomitant]
     Active Substance: SPIRONOLACTONE
  13. FURAZOLIDONE [Concomitant]
     Active Substance: FURAZOLIDONE
  14. ASPEGIC [Concomitant]
     Active Substance: ASPIRIN DL-LYSINE

REACTIONS (1)
  - Pyrexia [Recovered/Resolved]

NARRATIVE: CASE EVENT DATE: 20140808
